FAERS Safety Report 5962206-X (Version None)
Quarter: 2008Q4

REPORT INFORMATION
  Report Type: 
  Country: None (occurrence: None)
  Receive Date: 20081121
  Receipt Date: 20081113
  Transmission Date: 20090506
  Serious: Yes (Other)
  Sender: FDA-Public Use
  Company Number: PHHY2008GB20099

PATIENT
  Sex: Male

DRUGS (2)
  1. EXJADE [Suspect]
     Dosage: UNK
     Dates: start: 20080602, end: 20080609
  2. EXJADE [Suspect]
     Dosage: UNK
     Dates: start: 20080616, end: 20080623

REACTIONS (1)
  - CREATININE RENAL CLEARANCE DECREASED [None]
